FAERS Safety Report 13500392 (Version 1)
Quarter: 2017Q2

REPORT INFORMATION
  Report Type: Spontaneous
  Country: TR (occurrence: TR)
  Receive Date: 20170501
  Receipt Date: 20170501
  Transmission Date: 20170830
  Serious: Yes (Death, Other)
  Sender: FDA-Public Use
  Company Number: TR-PFIZER INC-2017185147

PATIENT
  Age: 43 Year
  Sex: Male

DRUGS (1)
  1. SUTENT [Suspect]
     Active Substance: SUNITINIB MALATE
     Dosage: 50 MG, CYCLIC(4 WEEKS ON 2 WEEKS OFF)

REACTIONS (6)
  - Hypertension [Unknown]
  - Sepsis [Unknown]
  - Ascites [Unknown]
  - Diarrhoea [Unknown]
  - Chronic kidney disease [Fatal]
  - Stomatitis [Unknown]
